FAERS Safety Report 7961191-9 (Version None)
Quarter: 2011Q4

REPORT INFORMATION
  Report Type: 
  Country: None (occurrence: None)
  Receive Date: 20111207
  Receipt Date: 20111128
  Transmission Date: 20120403
  Serious: Yes (Hospitalization, Other)
  Sender: FDA-Public Use
  Company Number: US-AMGEN-USASP2011016099

PATIENT
  Age: 43 Year
  Sex: Female
  Weight: 60.317 kg

DRUGS (3)
  1. ENBREL [Suspect]
     Indication: SPONDYLOARTHROPATHY
     Dosage: 50 MG, QWK
     Route: 058
     Dates: start: 20030314
  2. ENBREL [Suspect]
     Indication: RHEUMATOID ARTHRITIS
  3. METHOTREXATE [Concomitant]
     Dosage: UNK
     Dates: start: 20000801, end: 20080501

REACTIONS (6)
  - THROMBOCYTOPENIA [None]
  - CHOLECYSTECTOMY [None]
  - RENAL IMPAIRMENT [None]
  - UROSEPSIS [None]
  - LEUKOPENIA [None]
  - URINARY TRACT INFECTION [None]
